FAERS Safety Report 7250530-2 (Version None)
Quarter: 2011Q1

REPORT INFORMATION
  Report Type: 
  Country: None (occurrence: None)
  Receive Date: 20110128
  Receipt Date: 20110122
  Transmission Date: 20110831
  Serious: Yes (Death, Hospitalization, Other)
  Sender: FDA-Public Use
  Company Number: PHEH2009US16576

PATIENT
  Sex: Female
  Weight: 38.095 kg

DRUGS (6)
  1. ADVIL [Concomitant]
     Indication: ARTHRITIS
     Dosage: 200 MG, PRN
     Route: 048
     Dates: start: 20070101, end: 20091101
  2. RECLAST [Suspect]
     Dosage: 5 MG IV YEARLY
     Route: 042
     Dates: start: 20091008, end: 20091008
  3. REMICADE [Concomitant]
     Indication: RHEUMATOID ARTHRITIS
     Dosage: 6 MG/KG, EVERY 8 WEEKS
     Route: 042
     Dates: start: 20090105, end: 20090928
  4. PREDNISONE [Concomitant]
     Indication: RHEUMATOID ARTHRITIS
     Dosage: 5 MG DAILY
     Route: 048
     Dates: start: 20070413, end: 20091101
  5. RECLAST [Suspect]
     Indication: OSTEOPOROSIS
     Dosage: 5 MG IV YEARLY
     Route: 042
     Dates: start: 20071201
  6. VITAMIN B-12 [Concomitant]
     Indication: VITAMIN B12 DECREASED
     Route: 048

REACTIONS (25)
  - RESPIRATORY ARREST [None]
  - NAUSEA [None]
  - PAIN [None]
  - EATING DISORDER [None]
  - HEART RATE INCREASED [None]
  - THROMBOSIS [None]
  - ABDOMINAL PAIN [None]
  - DYSSTASIA [None]
  - RESPIRATORY FAILURE [None]
  - RENAL FAILURE ACUTE [None]
  - ASTHENIA [None]
  - PULMONARY EMBOLISM [None]
  - DEHYDRATION [None]
  - LETHARGY [None]
  - FUNGAL INFECTION [None]
  - BLOOD CREATININE INCREASED [None]
  - BLOOD PRESSURE INCREASED [None]
  - HAEMORRHAGE [None]
  - CONFUSIONAL STATE [None]
  - URINE OUTPUT DECREASED [None]
  - ELECTROLYTE IMBALANCE [None]
  - INFLUENZA [None]
  - PANCREATITIS [None]
  - URINARY TRACT INFECTION [None]
  - WEIGHT DECREASED [None]
